FAERS Safety Report 6418156-8 (Version None)
Quarter: 2009Q4

REPORT INFORMATION
  Report Type: 
  Country: None (occurrence: None)
  Receive Date: 20091028
  Receipt Date: 20091022
  Transmission Date: 20100525
  Serious: Yes (Hospitalization)
  Sender: FDA-Public Use
  Company Number: US-ELI_LILLY_AND_COMPANY-US200910005460

PATIENT
  Sex: Male

DRUGS (7)
  1. HUMALOG MIX 75/25 [Suspect]
     Dosage: 17 U, EACH MORNING
  2. HUMALOG MIX 75/25 [Suspect]
     Dosage: 16 U, EACH EVENING
  3. HUMALOG MIX 75/25 [Suspect]
     Dosage: UNK, UNKNOWN
  4. LIPITOR [Concomitant]
  5. COZAAR [Concomitant]
  6. FLOMAX [Concomitant]
  7. FLONASE [Concomitant]

REACTIONS (5)
  - BLOOD GLUCOSE DECREASED [None]
  - BLOOD GLUCOSE INCREASED [None]
  - FALL [None]
  - HIP FRACTURE [None]
  - POOR QUALITY DRUG ADMINISTERED [None]
